FAERS Safety Report 9088710 (Version 2)
Quarter: 2013Q2

REPORT INFORMATION
  Report Type: Report from Study
  Country: US (occurrence: US)
  Receive Date: 20130201
  Receipt Date: 20130419
  Transmission Date: 20140414
  Serious: Yes (Other)
  Sender: FDA-Public Use
  Company Number: US-BRISTOL-MYERS SQUIBB COMPANY-17319161

PATIENT
  Age: 70 Year
  Sex: Female
  Weight: 72.1 kg

DRUGS (9)
  1. MDX-1106 [Suspect]
     Indication: NON-SMALL CELL LUNG CANCER
     Dosage: INTERRUPTED:02JAN2013
     Route: 042
     Dates: start: 20121001
  2. CARBOPLATIN [Suspect]
     Indication: NON-SMALL CELL LUNG CANCER
     Dosage: INTERRUPTED:02JAN2013
     Dates: start: 20121001
  3. PACLITAXEL [Suspect]
     Indication: NON-SMALL CELL LUNG CANCER
     Dosage: INTERRUPTED:02JAN2013
     Dates: start: 20121001
  4. PAXIL [Concomitant]
     Indication: ANXIETY
     Route: 048
     Dates: start: 1997
  5. BABY ASPIRIN [Concomitant]
     Route: 048
     Dates: start: 2009
  6. DECADRON [Concomitant]
     Indication: NON-SMALL CELL LUNG CANCER
     Dosage: DOSAGE:12HRS AND HRS PRIOR TO CHEMO
     Route: 048
     Dates: start: 20120929
  7. ZOFRAN [Concomitant]
     Indication: NAUSEA
     Route: 048
     Dates: start: 20120929
  8. PROCHLORPERAZINE [Concomitant]
     Indication: NAUSEA
     Route: 048
     Dates: start: 20120929
  9. PRED FORTE [Concomitant]
     Indication: CATARACT
     Dates: start: 20130121

REACTIONS (2)
  - Uveitis [Recovered/Resolved]
  - Vitreous haemorrhage [Recovered/Resolved]
